FAERS Safety Report 11522224 (Version 1)
Quarter: 2015Q3

REPORT INFORMATION
  Report Type: Spontaneous
  Country: US (occurrence: US)
  Receive Date: 20150918
  Receipt Date: 20150918
  Transmission Date: 20151125
  Serious: No
  Sender: FDA-Public Use
  Company Number: US-ROCHE-719398

PATIENT
  Age: 50 Year
  Sex: Female

DRUGS (2)
  1. COPEGUS [Suspect]
     Active Substance: RIBAVIRIN
     Indication: HEPATITIS C
     Dosage: DIVIDED DOSES
     Route: 048
  2. PEGASYS [Suspect]
     Active Substance: PEGINTERFERON ALFA-2A
     Indication: HEPATITIS C
     Dosage: FORM:PFS
     Route: 058

REACTIONS (20)
  - Nausea [Unknown]
  - Ear pain [Unknown]
  - Rash papular [Not Recovered/Not Resolved]
  - Fall [Unknown]
  - White blood cell count decreased [Unknown]
  - Sinusitis [Unknown]
  - Fatigue [Unknown]
  - Headache [Unknown]
  - Musculoskeletal pain [Not Recovered/Not Resolved]
  - Alopecia [Not Recovered/Not Resolved]
  - Nasal congestion [Unknown]
  - Multiple injuries [Unknown]
  - Limb injury [Unknown]
  - Post procedural discharge [Unknown]
  - Somnolence [Unknown]
  - Contusion [Not Recovered/Not Resolved]
  - Chest pain [Unknown]
  - Tongue ulceration [Unknown]
  - Dyspnoea [Unknown]
  - Musculoskeletal pain [Unknown]

NARRATIVE: CASE EVENT DATE: 20100806
